FAERS Safety Report 10273963 (Version 1)
Quarter: 2014Q2

REPORT INFORMATION
  Report Type: Spontaneous
  Country: US (occurrence: None)
  Receive Date: 20140630
  Receipt Date: 20140630
  Transmission Date: 20141212
  Serious: No
  Sender: FDA-Public Use
  Company Number: None

PATIENT
  Age: 51 Year
  Sex: Female

DRUGS (1)
  1. ORENCIA [Suspect]
     Indication: RHEUMATOID ARTHRITIS
     Dosage: 125MG  WEEKLY  SQ
     Route: 058
     Dates: start: 20140327, end: 20140605

REACTIONS (3)
  - Rash generalised [None]
  - Pruritus [None]
  - Rash macular [None]
